FAERS Safety Report 12517115 (Version 10)
Quarter: 2018Q3

REPORT INFORMATION
  Report Type: Report from Study
  Country: GB (occurrence: GB)
  Receive Date: 20160630
  Receipt Date: 20180912
  Transmission Date: 20181010
  Serious: Yes (Death)
  Sender: FDA-Public Use
  Company Number: GB-PFIZER INC-2016320052

PATIENT
  Age: 40 Year
  Sex: Female

DRUGS (24)
  1. PREGABALIN. [Interacting]
     Active Substance: PREGABALIN
     Indication: GENERALISED ANXIETY DISORDER
  2. SERTRALINE HCL [Interacting]
     Active Substance: SERTRALINE HYDROCHLORIDE
     Indication: NEURALGIA
     Dosage: UNK
  3. SERTRALINE HCL [Interacting]
     Active Substance: SERTRALINE HYDROCHLORIDE
     Indication: EPILEPSY
  4. DIAZEPAM. [Interacting]
     Active Substance: DIAZEPAM
     Indication: GENERALISED ANXIETY DISORDER
  5. METHADONE [Interacting]
     Active Substance: METHADONE HYDROCHLORIDE
     Indication: EPILEPSY
  6. SERTRALINE HCL [Interacting]
     Active Substance: SERTRALINE HYDROCHLORIDE
     Indication: GENERALISED ANXIETY DISORDER
  7. FLUOXETINE [Interacting]
     Active Substance: FLUOXETINE HYDROCHLORIDE
     Indication: NEURALGIA
     Dosage: UNK
  8. BUPRENORPHINE. [Interacting]
     Active Substance: BUPRENORPHINE
     Indication: EPILEPSY
  9. METHADONE [Interacting]
     Active Substance: METHADONE HYDROCHLORIDE
     Indication: NEURALGIA
     Dosage: UNK
  10. FLUOXETINE [Interacting]
     Active Substance: FLUOXETINE HYDROCHLORIDE
     Indication: GENERALISED ANXIETY DISORDER
  11. DIAZEPAM. [Interacting]
     Active Substance: DIAZEPAM
     Indication: NEURALGIA
     Dosage: UNK
  12. DIAZEPAM. [Interacting]
     Active Substance: DIAZEPAM
     Indication: EPILEPSY
  13. AMITRIPTYLINE [Interacting]
     Active Substance: AMITRIPTYLINE
     Indication: EPILEPSY
  14. AMITRIPTYLINE [Interacting]
     Active Substance: AMITRIPTYLINE
     Indication: GENERALISED ANXIETY DISORDER
  15. PREGABALIN. [Interacting]
     Active Substance: PREGABALIN
     Indication: EPILEPSY
  16. CODEINE [Interacting]
     Active Substance: CODEINE
     Indication: NEURALGIA
     Dosage: UNK
  17. CODEINE [Interacting]
     Active Substance: CODEINE
     Indication: EPILEPSY
  18. CODEINE [Interacting]
     Active Substance: CODEINE
     Indication: GENERALISED ANXIETY DISORDER
  19. PREGABALIN. [Suspect]
     Active Substance: PREGABALIN
     Indication: NEURALGIA
     Dosage: 300 MG, UNK
  20. METHADONE [Interacting]
     Active Substance: METHADONE HYDROCHLORIDE
     Indication: GENERALISED ANXIETY DISORDER
  21. FLUOXETINE [Interacting]
     Active Substance: FLUOXETINE HYDROCHLORIDE
     Indication: EPILEPSY
  22. BUPRENORPHINE. [Interacting]
     Active Substance: BUPRENORPHINE
     Indication: NEURALGIA
     Dosage: UNK
  23. BUPRENORPHINE. [Interacting]
     Active Substance: BUPRENORPHINE
     Indication: GENERALISED ANXIETY DISORDER
  24. AMITRIPTYLINE [Interacting]
     Active Substance: AMITRIPTYLINE
     Indication: NEURALGIA
     Dosage: UNK

REACTIONS (4)
  - Toxicity to various agents [Fatal]
  - Drug interaction [Fatal]
  - Pulmonary oedema [Fatal]
  - Brain oedema [Fatal]
